FAERS Safety Report 9760260 (Version 1)
Quarter: 2013Q4

REPORT INFORMATION
  Report Type: Spontaneous
  Country: US (occurrence: US)
  Receive Date: 20131216
  Receipt Date: 20131216
  Transmission Date: 20140711
  Serious: No
  Sender: FDA-Public Use
  Company Number: US-GILEAD-2010-0028300

PATIENT
  Age: 84 Year
  Sex: Female

DRUGS (10)
  1. LETAIRIS [Suspect]
     Indication: PULMONARY ARTERIAL HYPERTENSION
     Route: 048
     Dates: start: 20100303, end: 20100313
  2. LEVOTHYROXINE [Concomitant]
  3. RANTIDINE [Concomitant]
  4. OMEPRAZOLE [Concomitant]
  5. ATENOLOL [Concomitant]
  6. SIMVASTATIN [Concomitant]
  7. VYTORIN [Concomitant]
  8. ASPIRIN [Concomitant]
  9. TRIAMT/HCTZ [Concomitant]
  10. ALENDRONATE [Concomitant]

REACTIONS (4)
  - Abdominal distension [Recovered/Resolved]
  - Aphagia [Recovered/Resolved]
  - Erythema [Recovered/Resolved]
  - Swelling face [Recovered/Resolved]
